FAERS Safety Report 9516427 (Version 1)
Quarter: 2013Q3

REPORT INFORMATION
  Report Type: Report from Study
  Country: DE (occurrence: NL)
  Receive Date: 20130911
  Receipt Date: 20130911
  Transmission Date: 20140515
  Serious: Yes (Hospitalization, Other)
  Sender: FDA-Public Use
  Company Number: DE-ACTELION-A-NJ2013-88233

PATIENT
  Age: 52 Year
  Sex: Female

DRUGS (8)
  1. VENTAVIS [Suspect]
     Indication: PULMONARY ARTERIAL HYPERTENSION
     Dosage: 5 ?G, Q4HRS
     Route: 065
     Dates: start: 20130206
  2. TRACLEER [Concomitant]
     Indication: PULMONARY ARTERIAL HYPERTENSION
  3. REVATIO [Concomitant]
  4. PANTOZOL [Concomitant]
  5. MARCOUMAR [Concomitant]
  6. FUROSEMIDE [Concomitant]
  7. SPIRONOLACTONE [Concomitant]
  8. FLUIMUCIL [Concomitant]

REACTIONS (5)
  - Oedema [Unknown]
  - Malaise [Unknown]
  - General physical health deterioration [Unknown]
  - Dyspnoea [Unknown]
  - Vasculitis [Unknown]
